FAERS Safety Report 9168236 (Version 2)
Quarter: 2013Q2

REPORT INFORMATION
  Report Type: Report from Study
  Country: CA (occurrence: CA)
  Receive Date: 20130318
  Receipt Date: 20130429
  Transmission Date: 20140414
  Serious: Yes (Hospitalization, Other)
  Sender: FDA-Public Use
  Company Number: CA-JNJFOC-20130305389

PATIENT
  Age: 78 Year
  Sex: Female
  Weight: 73 kg

DRUGS (1)
  1. REMICADE [Suspect]
     Indication: RHEUMATOID ARTHRITIS
     Route: 042
     Dates: start: 2003

REACTIONS (6)
  - Infection [Recovering/Resolving]
  - Arthritis bacterial [Recovering/Resolving]
  - Glomerulonephritis [Recovering/Resolving]
  - Staphylococcal bacteraemia [Recovering/Resolving]
  - Sacroiliitis [Recovering/Resolving]
  - Pyrexia [Recovering/Resolving]
